FAERS Safety Report 7515697-7 (Version None)
Quarter: 2011Q2

REPORT INFORMATION
  Report Type: 
  Country: None (occurrence: None)
  Receive Date: 20110601
  Receipt Date: 20110524
  Transmission Date: 20111010
  Serious: Yes (Death, Other)
  Sender: FDA-Public Use
  Company Number: CN-JNJFOC-20110512631

PATIENT
  Age: 67 Year
  Sex: Male

DRUGS (20)
  1. DOXORUBICIN HYDROCHLORIDE [Suspect]
     Route: 042
  2. DOXORUBICIN HYDROCHLORIDE [Suspect]
     Route: 042
  3. DOXORUBICIN HYDROCHLORIDE [Suspect]
     Route: 042
  4. VINCRISTINE [Suspect]
     Route: 065
  5. RITUXIMAB [Suspect]
     Indication: B-CELL LYMPHOMA
     Route: 065
  6. CYCLOPHOSPHAMIDE [Suspect]
     Indication: B-CELL LYMPHOMA
     Route: 065
  7. VINCRISTINE [Suspect]
     Route: 065
  8. RITUXIMAB [Suspect]
     Route: 065
  9. CYCLOPHOSPHAMIDE [Suspect]
     Route: 065
  10. CYCLOPHOSPHAMIDE [Suspect]
     Route: 065
  11. PREDNISONE [Suspect]
     Indication: B-CELL LYMPHOMA
     Route: 065
  12. CYCLOPHOSPHAMIDE [Suspect]
     Route: 065
  13. PREDNISONE [Suspect]
     Route: 065
  14. PREDNISONE [Suspect]
     Route: 065
  15. PREDNISONE [Suspect]
     Route: 065
  16. RITUXIMAB [Suspect]
     Route: 065
  17. VINCRISTINE [Suspect]
     Indication: B-CELL LYMPHOMA
     Route: 065
  18. DOXORUBICIN HYDROCHLORIDE [Suspect]
     Indication: B-CELL LYMPHOMA
     Route: 042
  19. RITUXIMAB [Suspect]
     Route: 065
  20. VINCRISTINE [Suspect]
     Route: 065

REACTIONS (6)
  - ACUTE RESPIRATORY DISTRESS SYNDROME [None]
  - INTESTINAL HAEMORRHAGE [None]
  - DIARRHOEA [None]
  - NEUTROPENIA [None]
  - PERITONITIS [None]
  - PNEUMONIA [None]
